FAERS Safety Report 5157807-5 (Version None)
Quarter: 2006Q4

REPORT INFORMATION
  Report Type: 
  Country: None (occurrence: None)
  Receive Date: 20061116
  Receipt Date: 20061103
  Transmission Date: 20070319
  Serious: Yes (Other)
  Sender: FDA-Public Use
  Company Number: 2006138486

PATIENT
  Age: 145 Day
  Sex: Male
  Weight: 2.95 kg

DRUGS (1)
  1. SILDENAFIL CITRATE [Suspect]
     Indication: PULMONARY HYPERTENSION
     Dosage: 12.6 MG (2.1 MG, 6 IN 1 D), ORAL
     Route: 048
     Dates: start: 20060418

REACTIONS (3)
  - COUGH [None]
  - PERTUSSIS [None]
  - STRIDOR [None]
